FAERS Safety Report 24930737 (Version 1)
Quarter: 2025Q1

REPORT INFORMATION
  Report Type: Report from Study
  Country: US (occurrence: US)
  Receive Date: 20250205
  Receipt Date: 20250205
  Transmission Date: 20250409
  Serious: Yes (Other)
  Sender: TAIHO ONCOLOGY INC
  Company Number: US-TAIHOP-2024-011796

PATIENT
  Age: 84 Year
  Sex: Male

DRUGS (1)
  1. INQOVI [Suspect]
     Active Substance: CEDAZURIDINE\DECITABINE
     Indication: Myelodysplastic syndrome
     Dosage: DECITABINE 35MG+ CEDAZURIDINE 100MG?CYCLE 1
     Route: 048
     Dates: start: 202411

REACTIONS (4)
  - Cytopenia [Unknown]
  - Product packaging quantity issue [Unknown]
  - Product dose omission in error [Unknown]
  - Taste disorder [Unknown]

NARRATIVE: CASE EVENT DATE: 20241208
